FAERS Safety Report 19631666 (Version 2)
Quarter: 2021Q3

REPORT INFORMATION
  Report Type: Spontaneous
  Country: US (occurrence: US)
  Receive Date: 20210729
  Receipt Date: 20210802
  Transmission Date: 20211014
  Serious: Yes (Hospitalization)
  Sender: FDA-Public Use
  Company Number: US-TEVA-2021-US-1935786

PATIENT
  Age: 77 Year
  Sex: Male

DRUGS (8)
  1. PREDNISONE. [Suspect]
     Active Substance: PREDNISONE
     Indication: PACHYMENINGITIS
     Dosage: 40 MILLIGRAM DAILY; STARTED IN THE SPRING OF 2020 ALONG WITH LEVETIRACETAM
     Route: 048
     Dates: start: 2020, end: 2020
  2. LEVETIRACETAM. [Concomitant]
     Active Substance: LEVETIRACETAM
     Indication: PACHYMENINGITIS
     Dosage: STARTED IN THE SPRING OF 2020 ALONG WITH PREDNISONE
     Route: 065
     Dates: start: 2020
  3. PREDNISONE. [Suspect]
     Active Substance: PREDNISONE
     Dosage: TAPERING STARTED AFTER RECEIVING TWO DOSES OF IV RITUXIMAB
     Route: 048
     Dates: start: 202009
  4. RITUXIMAB. [Suspect]
     Active Substance: RITUXIMAB
     Dosage: RECEIVED TWO DOSES, ONE AT THE END OF AUGUST AND ANOTHER IN EARLY SEPTEMBER
     Route: 041
     Dates: start: 202008, end: 202009
  5. ATOVAQUONE. [Concomitant]
     Active Substance: ATOVAQUONE
     Indication: PRODUCT USED FOR UNKNOWN INDICATION
     Route: 065
  6. PREDNISONE. [Suspect]
     Active Substance: PREDNISONE
     Indication: GRANULOMATOSIS WITH POLYANGIITIS
     Dosage: ALONG WITH METHOTREXATE
     Route: 065
  7. PREDNISONE. [Suspect]
     Active Substance: PREDNISONE
     Dosage: 15 MILLIGRAM DAILY;
     Route: 048
  8. RITUXIMAB. [Suspect]
     Active Substance: RITUXIMAB
     Indication: GRANULOMATOSIS WITH POLYANGIITIS
     Dosage: BETWEEN 2006 AND 2015, THE PATIENT RECEIVED TOTAL 6 TREATMENTS WITH RITUXIMAB
     Route: 065

REACTIONS (3)
  - Sepsis [Recovered/Resolved]
  - COVID-19 pneumonia [Recovered/Resolved]
  - COVID-19 [Recovered/Resolved]

NARRATIVE: CASE EVENT DATE: 2020
